FAERS Safety Report 6933752-7 (Version None)
Quarter: 2010Q3

REPORT INFORMATION
  Report Type: 
  Country: None (occurrence: None)
  Receive Date: 20100820
  Receipt Date: 20100810
  Transmission Date: 20110219
  Serious: Yes (Other)
  Sender: FDA-Public Use
  Company Number: US-PFIZER INC-2010100879

PATIENT
  Sex: Female

DRUGS (2)
  1. PROCARDIA [Suspect]
  2. ATENOLOL [Suspect]
     Dosage: 25 MG, UNK

REACTIONS (7)
  - AFFECT LABILITY [None]
  - DEPRESSION [None]
  - EPHELIDES [None]
  - FATIGUE [None]
  - HYPOTENSION [None]
  - LETHARGY [None]
  - VISION BLURRED [None]
